FAERS Safety Report 8048553-9 (Version None)
Quarter: 2012Q1

REPORT INFORMATION
  Report Type: 
  Country: None (occurrence: None)
  Receive Date: 20120117
  Receipt Date: 20120112
  Transmission Date: 20120608
  Serious: No
  Sender: FDA-Public Use
  Company Number: US-PFIZER INC-2012010746

PATIENT
  Age: 3 Month
  Sex: Male

DRUGS (1)
  1. DEPO-PROVERA [Suspect]
     Indication: CONTRACEPTION
     Dosage: UNK
     Route: 063
     Dates: start: 20111230

REACTIONS (2)
  - EXPOSURE DURING BREAST FEEDING [None]
  - ALOPECIA [None]
